FAERS Safety Report 17235966 (Version 2)
Quarter: 2020Q1

REPORT INFORMATION
  Report Type: Spontaneous
  Country: US (occurrence: US)
  Receive Date: 20200106
  Receipt Date: 20200323
  Transmission Date: 20200409
  Serious: Yes (Other)
  Sender: FDA-Public Use
  Company Number: US-TEVA-2020-US-1163121

PATIENT
  Age: 51 Year
  Sex: Male

DRUGS (3)
  1. OXALIPLATIN. [Concomitant]
     Active Substance: OXALIPLATIN
     Indication: RECTOSIGMOID CANCER STAGE II
     Dosage: FOLFOX REGIMEN
     Route: 065
  2. FOLINIC ACID [Concomitant]
     Active Substance: LEUCOVORIN
     Indication: RECTOSIGMOID CANCER STAGE II
     Dosage: FOLFOX REGIMEN
     Route: 065
  3. FLUOROURACIL [5-FLUOROURACIL] [Suspect]
     Active Substance: FLUOROURACIL
     Indication: RECTOSIGMOID CANCER STAGE II
     Dosage: FOLFOX REGIMEN
     Route: 065

REACTIONS (4)
  - Arteriospasm coronary [Recovering/Resolving]
  - Acute myocardial infarction [Recovering/Resolving]
  - Ejection fraction decreased [Recovering/Resolving]
  - Cardiomyopathy [Recovering/Resolving]
